FAERS Safety Report 8849833 (Version 3)
Quarter: 2012Q4

REPORT INFORMATION
  Report Type: 
  Country: US (occurrence: US)
  Receive Date: 20121019
  Receipt Date: 20121119
  Transmission Date: 20130627
  Serious: Yes (Hospitalization, Other)
  Sender: FDA-Public Use
  Company Number: US-ELI_LILLY_AND_COMPANY-US201210003191

PATIENT
  Age: 46 Year
  Sex: Male

DRUGS (8)
  1. BYDUREON [Suspect]
     Indication: TYPE 2 DIABETES MELLITUS
     Dosage: 2 mg, weekly (1/W)
     Route: 058
     Dates: start: 20120620
  2. VITAMIN D [Concomitant]
     Indication: HYPOVITAMINOSIS
     Dosage: 50000 u, weekly (1/W)
     Route: 048
     Dates: start: 20120521
  3. METFORMIN [Concomitant]
     Indication: TYPE 2 DIABETES MELLITUS
     Dosage: 500 mg, UNK
     Route: 048
     Dates: start: 20120521
  4. SIMVASTATIN [Concomitant]
     Indication: TYPE 2 DIABETES MELLITUS
     Dosage: 20 mg, UNK
     Route: 048
     Dates: start: 20120717
  5. LISINOPRIL [Concomitant]
     Indication: TYPE 2 DIABETES MELLITUS
     Dosage: 10 mg, UNK
     Route: 048
     Dates: start: 20120717
  6. OMEGA 3 [Concomitant]
     Indication: HEPATIC STEATOSIS
     Dosage: UNK
     Dates: start: 20120430
  7. ASPIRIN [Concomitant]
     Dosage: 325 mg, qd
     Route: 048
     Dates: start: 20120907
  8. MULTIVITAMIN [Concomitant]
     Dosage: UNK
     Route: 048

REACTIONS (5)
  - Myocardial infarction [Recovered/Resolved]
  - Cellulitis [Recovering/Resolving]
  - Glycosylated haemoglobin decreased [Unknown]
  - Blood glucose increased [Unknown]
  - Excoriation [Unknown]
